FAERS Safety Report 9360391 (Version 1)
Quarter: 2013Q2

REPORT INFORMATION
  Report Type: Spontaneous
  Country: US (occurrence: US)
  Receive Date: 20130621
  Receipt Date: 20130621
  Transmission Date: 20140414
  Serious: Yes (Other)
  Sender: FDA-Public Use
  Company Number: US-ELI_LILLY_AND_COMPANY-US201306002892

PATIENT
  Sex: Female
  Weight: 63 kg

DRUGS (7)
  1. CYMBALTA [Suspect]
     Indication: DEPRESSION
     Dosage: UNK, UNKNOWN
     Route: 065
  2. LYRICA [Concomitant]
     Indication: FIBROMYALGIA
     Dosage: UNK, UNKNOWN
     Route: 065
     Dates: start: 2007
  3. LYRICA [Concomitant]
     Dosage: 150 MG, TID
     Route: 065
     Dates: end: 2011
  4. ZOLOFT [Concomitant]
     Indication: DEPRESSION
     Dosage: UNK, UNKNOWN
     Route: 065
  5. GABAPENTIN [Concomitant]
     Indication: FIBROMYALGIA
     Dosage: 300 MG, BID
     Route: 065
     Dates: start: 2012
  6. IBUPROFEN [Concomitant]
     Indication: PAIN
     Dosage: 600 MG, BID
     Route: 065
  7. BUPROPION HYDROCHLORIDE [Concomitant]
     Indication: DEPRESSION
     Dosage: UNK, UNKNOWN
     Route: 065

REACTIONS (9)
  - Sleep apnoea syndrome [Unknown]
  - Depression [Recovering/Resolving]
  - Somnolence [Unknown]
  - Pain [Not Recovered/Not Resolved]
  - Agitation [Unknown]
  - Malaise [Recovering/Resolving]
  - Visual impairment [Unknown]
  - Weight increased [Unknown]
  - Drug ineffective [Unknown]
